FAERS Safety Report 21605223 (Version 3)
Quarter: 2023Q1

REPORT INFORMATION
  Report Type: Report from Study
  Country: RU (occurrence: RU)
  Receive Date: 20221116
  Receipt Date: 20230217
  Transmission Date: 20230417
  Serious: Yes (Life-Threatening, Hospitalization)
  Sender: FDA-Public Use
  Company Number: RU-JNJFOC-20211156015

PATIENT
  Age: 69 Year
  Sex: Female
  Weight: 88 kg

DRUGS (19)
  1. AMIVANTAMAB [Suspect]
     Active Substance: AMIVANTAMAB
     Indication: Non-small cell lung cancer metastatic
     Dosage: MOST RECENT DOSE 19-OCT-2021
     Route: 042
     Dates: start: 20210415
  2. INSULIN GLARGINE [Concomitant]
     Active Substance: INSULIN GLARGINE
     Indication: Diabetes mellitus
     Dosage: DOSE 46, UNITS NOT PROVIDED
     Route: 058
     Dates: start: 20140101
  3. INSULIN GLARGINE [Concomitant]
     Active Substance: INSULIN GLARGINE
     Indication: Hyperglycaemia
  4. INSULINUM HUMANUM [Concomitant]
     Indication: Diabetes mellitus
     Dosage: DOSE 18, UNITS NOT PROVIDED
     Route: 058
     Dates: start: 20140101
  5. INSULINUM HUMANUM [Concomitant]
     Indication: Hyperglycaemia
  6. METFORMINUM [METFORMIN] [Concomitant]
     Indication: Diabetes mellitus
     Route: 048
     Dates: start: 20160101
  7. METFORMINUM [METFORMIN] [Concomitant]
     Indication: Hyperglycaemia
  8. LISINOPRILUM [Concomitant]
     Indication: Hypertension
     Route: 048
     Dates: start: 20180101
  9. BISOPROLOL FUMARATE [Concomitant]
     Active Substance: BISOPROLOL FUMARATE
     Indication: Hypertension
     Route: 048
     Dates: start: 20180101
  10. TITANIUM DIOXIDE [Concomitant]
     Active Substance: TITANIUM DIOXIDE
     Indication: Prophylaxis against solar radiation
     Dosage: DOSE 1, UNIT NOT PROVIDED
     Route: 061
     Dates: start: 20210415
  11. EMPAGLIFLOZIN [Concomitant]
     Active Substance: EMPAGLIFLOZIN
     Indication: Diabetes mellitus
     Route: 048
     Dates: start: 20210426
  12. EMPAGLIFLOZIN [Concomitant]
     Active Substance: EMPAGLIFLOZIN
     Indication: Hyperglycaemia
  13. LEVOTHYROXINE SODIUM [Concomitant]
     Active Substance: LEVOTHYROXINE SODIUM
     Indication: Hypothyroidism
     Route: 048
     Dates: start: 20210611
  14. AMLODIPINUM [Concomitant]
     Indication: Hypertension
     Route: 048
     Dates: start: 20210611
  15. LIPIKAR BAUME AP+ [Concomitant]
     Indication: Prophylaxis against solar radiation
     Dosage: DOSE 1, UNITS NOT PROVIDED
     Route: 061
     Dates: start: 20210611
  16. CLOTRIMAZOLE [Concomitant]
     Active Substance: CLOTRIMAZOLE
     Indication: Paronychia
     Dosage: DOSE 1, UNITS NOT PROVIDED
     Route: 061
     Dates: start: 20210618
  17. CLOTRIMAZOLE [Concomitant]
     Active Substance: CLOTRIMAZOLE
     Dosage: DOSE 1, UNITS NOT PROVIDED
     Route: 061
     Dates: start: 20210805
  18. BUDESONIDE [Concomitant]
     Active Substance: BUDESONIDE
     Indication: Upper respiratory tract infection
     Route: 048
     Dates: start: 20211006
  19. ACETYLCYSTEINE [Concomitant]
     Active Substance: ACETYLCYSTEINE
     Indication: Upper respiratory tract infection
     Route: 048
     Dates: start: 20211006

REACTIONS (1)
  - Pulmonary embolism [Recovering/Resolving]

NARRATIVE: CASE EVENT DATE: 20211117
